FAERS Safety Report 5830654-4 (Version None)
Quarter: 2008Q3

REPORT INFORMATION
  Report Type: 
  Country: None (occurrence: None)
  Receive Date: 20080801
  Receipt Date: 20070914
  Transmission Date: 20090109
  Serious: No
  Sender: FDA-Public Use
  Company Number: US-BRISTOL-MYERS SQUIBB COMPANY-13909205

PATIENT
  Age: 86 Year
  Sex: Female
  Weight: 68 kg

DRUGS (12)
  1. COUMADIN [Suspect]
     Indication: CEREBROVASCULAR ACCIDENT
     Dosage: COUMADIN 5 MG DAILY FOR 1 DAY AND 4 MG DAILY FOR 6 DAYS.
     Route: 048
  2. HUMULIN 70/30 [Concomitant]
  3. ZESTRIL [Concomitant]
  4. AMIODARONE HCL [Concomitant]
  5. TENORMIN [Concomitant]
  6. PREVACID [Concomitant]
  7. ASPIRIN [Concomitant]
  8. FLAXSEED OIL [Concomitant]
  9. OMEGA 3 FATTY ACID [Concomitant]
  10. ASCORBIC ACID [Concomitant]
  11. VITAMIN D [Concomitant]
  12. PRESERVISION AREDS [Concomitant]

REACTIONS (1)
  - EYE HAEMORRHAGE [None]
